FAERS Safety Report 5005909-6 (Version None)
Quarter: 2006Q2

REPORT INFORMATION
  Report Type: 
  Country: None (occurrence: None)
  Receive Date: 20060518
  Receipt Date: 20060223
  Transmission Date: 20061013
  Serious: Yes (Hospitalization)
  Sender: FDA-Public Use
  Company Number: PHNU2006DE01091

PATIENT
  Sex: Male

DRUGS (4)
  1. VALERIAN [Concomitant]
  2. DIOVAN [Suspect]
     Indication: HYPERTENSION
     Dates: start: 19990101, end: 20060304
  3. DIOVAN [Suspect]
     Dosage: 1 DF, QD
     Dates: start: 20060312
  4. BETA BLOCKING AGENTS [Concomitant]

REACTIONS (16)
  - BLOOD PRESSURE FLUCTUATION [None]
  - BLOOD PRESSURE INADEQUATELY CONTROLLED [None]
  - CHEST DISCOMFORT [None]
  - CONDITION AGGRAVATED [None]
  - DRUG INEFFECTIVE [None]
  - EAR DISORDER [None]
  - ERUCTATION [None]
  - HOT FLUSH [None]
  - NERVOUSNESS [None]
  - NIGHTMARE [None]
  - PARAESTHESIA [None]
  - RESTLESSNESS [None]
  - SLEEP DISORDER [None]
  - TACHYCARDIA [None]
  - TINNITUS [None]
  - VERTIGO [None]
